FAERS Safety Report 25619948 (Version 1)
Quarter: 2025Q3

REPORT INFORMATION
  Report Type: Spontaneous
  Country: US (occurrence: US)
  Receive Date: 20250730
  Receipt Date: 20250730
  Transmission Date: 20251021
  Serious: No
  Sender: ROCHE
  Company Number: US-ROCHE-10000335633

PATIENT
  Age: 60 Year
  Sex: Female

DRUGS (8)
  1. XOLAIR [Suspect]
     Active Substance: OMALIZUMAB
     Indication: Chronic obstructive pulmonary disease
     Dosage: GIVEN WITH ONE 150MG AUTOINJECTOR AND ONE 75MG AUTOINJECTOR
     Route: 058
  2. XOLAIR [Suspect]
     Active Substance: OMALIZUMAB
     Indication: Multiple allergies
     Route: 058
     Dates: start: 202503
  3. XOLAIR [Suspect]
     Active Substance: OMALIZUMAB
     Indication: Asthma
  4. ADVAIR HFA [Concomitant]
     Active Substance: FLUTICASONE PROPIONATE\SALMETEROL XINAFOATE
     Dosage: 500/50 MCG
     Route: 055
  5. SPIRIVA [Concomitant]
     Active Substance: TIOTROPIUM BROMIDE MONOHYDRATE
     Dosage: 18 MCG
     Route: 055
  6. COREG [Concomitant]
     Active Substance: CARVEDILOL
     Route: 048
     Dates: start: 2013
  7. ALBUTEROL [Concomitant]
     Active Substance: ALBUTEROL
     Route: 055
  8. HYDROXYZINE [Concomitant]
     Active Substance: HYDROXYZINE HYDROCHLORIDE
     Indication: Anxiety
     Route: 048
     Dates: start: 2013

REACTIONS (14)
  - Device issue [Unknown]
  - Needle issue [Unknown]
  - Product dose omission issue [Unknown]
  - Product dispensing error [Unknown]
  - Off label use [Unknown]
  - Carpal tunnel syndrome [Unknown]
  - Pain in extremity [Not Recovered/Not Resolved]
  - Contusion [Recovered/Resolved]
  - Immunodeficiency [Recovered/Resolved]
  - Sinusitis [Not Recovered/Not Resolved]
  - Wrong technique in product usage process [Unknown]
  - Oropharyngeal pain [Unknown]
  - Headache [Unknown]
  - Dyspnoea [Unknown]

NARRATIVE: CASE EVENT DATE: 20250708
